FAERS Safety Report 10417951 (Version 1)
Quarter: 2014Q2

REPORT INFORMATION
  Report Type: Spontaneous
  Country: US (occurrence: None)
  Receive Date: 20140613
  Receipt Date: 20140613
  Transmission Date: 20141212
  Serious: No
  Sender: FDA-Public Use
  Company Number: PHEH2013US018515

PATIENT
  Age: 63 Year
  Sex: Female

DRUGS (2)
  1. EXFORGE HCT [Suspect]
     Dosage: 1 DF 160 MG VIAL
     Route: 048
     Dates: start: 2005
  2. ASPIRIN (ACETYLSALICYLIC ACID) [Concomitant]

REACTIONS (3)
  - Blood pressure increased [None]
  - Dizziness [None]
  - Expired product administered [None]
